FAERS Safety Report 16770800 (Version 3)
Quarter: 2020Q1

REPORT INFORMATION
  Report Type: Report from Study
  Country: US (occurrence: US)
  Receive Date: 20190904
  Receipt Date: 20200313
  Transmission Date: 20200409
  Serious: No
  Sender: FDA-Public Use
  Company Number: PHEH2019US036448

PATIENT
  Sex: Female

DRUGS (1)
  1. MAYZENT [Suspect]
     Active Substance: SIPONIMOD
     Indication: PRODUCT USED FOR UNKNOWN INDICATION
     Dosage: 2 MG, QD
     Route: 048

REACTIONS (6)
  - Vomiting [Unknown]
  - Ligament sprain [Unknown]
  - Contusion [Unknown]
  - Balance disorder [Unknown]
  - Headache [Unknown]
  - Peripheral swelling [Unknown]
